FAERS Safety Report 8818031 (Version 3)
Quarter: 2013Q1

REPORT INFORMATION
  Report Type: Spontaneous
  Country: US (occurrence: US)
  Receive Date: 20121001
  Receipt Date: 20130114
  Transmission Date: 20140127
  Serious: Yes (Death, Hospitalization, Other)
  Sender: FDA-Public Use
  Company Number: US-009507513-1203USA01690

PATIENT
  Sex: 0

DRUGS (2)
  1. FOSAMAX [Suspect]
     Indication: OSTEOPENIA
     Dosage: 70 MG, QW
     Route: 048
     Dates: start: 20011126, end: 20070227
  2. FOSAMAX [Suspect]
     Indication: OSTEOPOROSIS

REACTIONS (26)
  - Respiratory failure [Fatal]
  - Neoplasm malignant [Fatal]
  - Surgery [Unknown]
  - Femur fracture [Unknown]
  - Intramedullary rod insertion [Unknown]
  - Femur fracture [Unknown]
  - Pneumonia [Recovering/Resolving]
  - Pulmonary embolism [Recovering/Resolving]
  - Hip arthroplasty [Unknown]
  - Lip and/or oral cavity cancer [Unknown]
  - Biopsy bone [Unknown]
  - Hypertension [Unknown]
  - Adverse event [Unknown]
  - Hypophagia [Unknown]
  - Post procedural haematoma [Unknown]
  - Oral surgery [Unknown]
  - Anxiety [Unknown]
  - Hypothyroidism [Unknown]
  - Pain [Unknown]
  - Fall [Unknown]
  - Hip fracture [Unknown]
  - Anaemia [Unknown]
  - Arthritis [Unknown]
  - Renal disorder [Unknown]
  - Gait disturbance [Unknown]
  - Scoliosis [Unknown]
